FAERS Safety Report 4499502-1 (Version None)
Quarter: 2004Q4

REPORT INFORMATION
  Report Type: 
  Country: None (occurrence: None)
  Receive Date: 20040928
  Receipt Date: 20040622
  Transmission Date: 20050328
  Serious: No
  Sender: FDA-Public Use
  Company Number: 04P-163-0264544-00

PATIENT
  Age: 61 Year
  Sex: Female
  Weight: 58.9676 kg

DRUGS (10)
  1. HUMIRA [Suspect]
     Indication: RHEUMATOID ARTHRITIS
     Dosage: 40 MG, 1 IN 2 WK, SUBCUTANEOUS
     Route: 058
     Dates: start: 20040617, end: 20040619
  2. METHOTREXATE SODIUM [Concomitant]
  3. OXYCONTIN [Concomitant]
  4. CODEINE [Concomitant]
  5. GABAPENTIN [Concomitant]
  6. TIZANIDINE HCL [Concomitant]
  7. CONJUGATED ESTROGEN [Concomitant]
  8. ZOLPIDEM TARTRATE [Concomitant]
  9. OLANZAPINE [Concomitant]
  10. LEVOTHYROXINE SODIUM [Concomitant]

REACTIONS (1)
  - ARTHRALGIA [None]
